FAERS Safety Report 13124112 (Version 2)
Quarter: 2017Q1

REPORT INFORMATION
  Report Type: Spontaneous
  Country: US (occurrence: US)
  Receive Date: 20170118
  Receipt Date: 20170309
  Transmission Date: 20170428
  Serious: Yes (Other)
  Sender: FDA-Public Use
  Company Number: US-AMGEN-USASP2017004452

PATIENT
  Age: 64 Year
  Sex: Female

DRUGS (5)
  1. NEURONTIN [Concomitant]
     Active Substance: GABAPENTIN
     Dosage: 300 MG, TID
  2. ENBREL [Suspect]
     Active Substance: ETANERCEPT
     Indication: PSORIASIS
     Dosage: 50 MG, QWK  (ON WEDNESDAYS.)
     Route: 065
  3. ENBREL [Suspect]
     Active Substance: ETANERCEPT
     Dosage: UNK
     Route: 065
  4. FLONASE [Concomitant]
     Active Substance: FLUTICASONE PROPIONATE
     Dosage: UNK
  5. ALPRAZOLAM. [Concomitant]
     Active Substance: ALPRAZOLAM
     Dosage: UNK UNK, BID

REACTIONS (23)
  - Cough [Unknown]
  - Oropharyngeal pain [Unknown]
  - Cerebrovascular accident [Unknown]
  - Poor quality sleep [Unknown]
  - Renal failure [Not Recovered/Not Resolved]
  - Dehydration [Unknown]
  - Eye infection [Unknown]
  - Chronic obstructive pulmonary disease [Unknown]
  - Unevaluable event [Unknown]
  - Psoriasis [Unknown]
  - Hypoaesthesia [Unknown]
  - Blindness [Not Recovered/Not Resolved]
  - Concussion [Unknown]
  - Hypertension [Unknown]
  - Hypophagia [Unknown]
  - Fall [Unknown]
  - Decreased immune responsiveness [Unknown]
  - Incorrect product storage [Unknown]
  - Generalised tonic-clonic seizure [Unknown]
  - Amnesia [Unknown]
  - Hypersomnia [Unknown]
  - Cold sweat [Unknown]
  - Pneumonia [Unknown]

NARRATIVE: CASE EVENT DATE: 20151123
